FAERS Safety Report 9284963 (Version 1)
Quarter: 2013Q2

REPORT INFORMATION
  Report Type: Spontaneous
  Country: US (occurrence: US)
  Receive Date: 20130513
  Receipt Date: 20130513
  Transmission Date: 20140414
  Serious: Yes (Other)
  Sender: FDA-Public Use
  Company Number: PHEH2013US009819

PATIENT
  Sex: Female
  Weight: 130 kg

DRUGS (5)
  1. TRILEPTAL [Suspect]
     Indication: BIPOLAR DISORDER
     Dosage: 600 MG, DAILY
  2. TEGRETOL [Suspect]
     Indication: BIPOLAR DISORDER
     Dosage: UNK UKN, UNK
     Dates: start: 201009
  3. GEODON [Suspect]
  4. RISPERDAL [Suspect]
  5. ZYPREXA [Suspect]

REACTIONS (3)
  - Road traffic accident [Unknown]
  - Blood test abnormal [Unknown]
  - Drug ineffective [Unknown]
